FAERS Safety Report 7338503-2 (Version None)
Quarter: 2011Q1

REPORT INFORMATION
  Report Type: 
  Country: None (occurrence: None)
  Receive Date: 20110308
  Receipt Date: 20110303
  Transmission Date: 20110831
  Serious: Yes (Other)
  Sender: FDA-Public Use
  Company Number: CHPA2011US03600

PATIENT
  Age: 2 Month
  Sex: Male
  Weight: 4.943 kg

DRUGS (2)
  1. TRIAMINIC FEVER REDUCER PAIN RELIEVER [Suspect]
     Indication: PYREXIA
     Dosage: 0.4 ML, ONCE/SINGLE
     Route: 048
     Dates: start: 20110201, end: 20110201
  2. TRIAMINIC FEVER REDUCER PAIN RELIEVER [Suspect]
     Indication: PAIN

REACTIONS (2)
  - OVERDOSE [None]
  - BRONCHITIS [None]
